FAERS Safety Report 7039495-6 (Version None)
Quarter: 2010Q4

REPORT INFORMATION
  Report Type: 
  Country: None (occurrence: None)
  Receive Date: 20101012
  Receipt Date: 20100929
  Transmission Date: 20110411
  Serious: Yes (Hospitalization)
  Sender: FDA-Public Use
  Company Number: US-ELI_LILLY_AND_COMPANY-US201009003225

PATIENT
  Sex: Female
  Weight: 55 kg

DRUGS (5)
  1. PRASUGREL HYDROCHLORIDE [Suspect]
     Indication: ACUTE CORONARY SYNDROME
     Dosage: 5 MG, DAILY (1/D)
     Dates: start: 20100825
  2. PRASUGREL HYDROCHLORIDE [Suspect]
     Dosage: 60 MG, OTHER
     Dates: start: 20100825, end: 20100825
  3. ASPIRIN [Concomitant]
     Indication: CORONARY ARTERY DISEASE
     Dosage: 81 MG, DAILY (1/D)
     Route: 048
     Dates: start: 20100810
  4. CLONIDINE [Concomitant]
     Indication: HYPERTENSION
     Dosage: 0.3 MG, AS NEEDED
     Route: 048
  5. BISOPROLOL [Concomitant]
     Indication: HYPERTENSION
     Dosage: 5 MG, 2/D
     Route: 048

REACTIONS (3)
  - CHEST PAIN [None]
  - PLEURAL EFFUSION [None]
  - URINARY TRACT INFECTION [None]
